FAERS Safety Report 9357672 (Version 1)
Quarter: 2013Q2

REPORT INFORMATION
  Report Type: Spontaneous
  Country: FI (occurrence: FI)
  Receive Date: 20130620
  Receipt Date: 20130620
  Transmission Date: 20140414
  Serious: Yes (Other)
  Sender: FDA-Public Use
  Company Number: FI-PFIZER INC-2013182845

PATIENT
  Sex: 0

DRUGS (1)
  1. SUTENT [Suspect]
     Dosage: UNK
     Dates: start: 2007

REACTIONS (1)
  - Coronary artery disease [Unknown]
